FAERS Safety Report 8134276-4 (Version None)
Quarter: 2012Q1

REPORT INFORMATION
  Report Type: 
  Country: None (occurrence: None)
  Receive Date: 20120209
  Receipt Date: 20120131
  Transmission Date: 20120608
  Serious: Yes (Death, Life-Threatening, Hospitalization, Other)
  Sender: FDA-Public Use
  Company Number: 2012MA001384

PATIENT
  Sex: Male
  Weight: 54.4316 kg

DRUGS (12)
  1. ATROVENT [Concomitant]
  2. AZITHROMYCIN [Concomitant]
  3. CALCIUM GLUCONATE [Concomitant]
  4. CALCIUM CHLORIDE [Concomitant]
  5. MAGNESIUM [Concomitant]
  6. PROTONIX [Concomitant]
  7. DIGOXIN [Suspect]
     Dosage: 0.25 MG;QD;PO
     Route: 048
     Dates: start: 19961119
  8. CEFEPIME [Concomitant]
  9. ALBUTEROL [Concomitant]
  10. COLACE [Concomitant]
  11. HEPARIN [Concomitant]
  12. VANCOMYCIN [Concomitant]

REACTIONS (19)
  - SEPTIC SHOCK [None]
  - CARDIOACTIVE DRUG LEVEL INCREASED [None]
  - GASTROINTESTINAL SOUNDS ABNORMAL [None]
  - PULSE ABSENT [None]
  - RESPIRATORY ARREST [None]
  - OLIGURIA [None]
  - RESPIRATORY FAILURE [None]
  - AORTIC ARTERIOSCLEROSIS [None]
  - ARTERIOSCLEROSIS [None]
  - AORTIC CALCIFICATION [None]
  - CACHEXIA [None]
  - DRY SKIN [None]
  - PNEUMONIA [None]
  - ACIDOSIS [None]
  - PUPIL FIXED [None]
  - HYPERKALAEMIA [None]
  - MYOCARDIAL INFARCTION [None]
  - PULMONARY OEDEMA [None]
  - BUNDLE BRANCH BLOCK LEFT [None]
